APPROVED DRUG PRODUCT: NEFAZODONE HYDROCHLORIDE
Active Ingredient: NEFAZODONE HYDROCHLORIDE
Strength: 150MG
Dosage Form/Route: TABLET;ORAL
Application: A076309 | Product #003
Applicant: DR REDDYS LABORATORIES INC
Approved: Sep 16, 2003 | RLD: No | RS: No | Type: DISCN